FAERS Safety Report 4445399-5 (Version None)
Quarter: 2004Q3

REPORT INFORMATION
  Report Type: 
  Country: None (occurrence: None)
  Receive Date: 20040730
  Receipt Date: 20040401
  Transmission Date: 20050211
  Serious: Yes (Life-Threatening, Other)
  Sender: FDA-Public Use
  Company Number: 138551USA

PATIENT
  Age: 31 Year
  Sex: Male
  Weight: 78.9259 kg

DRUGS (3)
  1. AMOXICILLIN AND CLAVULANATE POTASSIUM [Suspect]
     Indication: SINUSITIS
     Dates: start: 20040128, end: 20040128
  2. ALLEGRA-D [Concomitant]
  3. NASAL SPRAY [Concomitant]

REACTIONS (1)
  - THROAT TIGHTNESS [None]
